FAERS Safety Report 4614868-7 (Version None)
Quarter: 2005Q1

REPORT INFORMATION
  Report Type: 
  Country: None (occurrence: None)
  Receive Date: 20050318
  Receipt Date: 20050318
  Transmission Date: 20050727
  Serious: Yes (Other)
  Sender: FDA-Public Use
  Company Number: None

PATIENT
  Sex: Female
  Weight: 58.9676 kg

DRUGS (1)
  1. EFFEXOR [Suspect]
     Indication: LOSS OF LIBIDO
     Dosage: 300 MG   PER DAY   ORAL
     Route: 048
     Dates: start: 19990601, end: 20050315

REACTIONS (4)
  - DEPENDENCE [None]
  - FEELING ABNORMAL [None]
  - PARAESTHESIA [None]
  - THERAPEUTIC PRODUCT INEFFECTIVE [None]
